FAERS Safety Report 11620360 (Version 1)
Quarter: 2015Q4

REPORT INFORMATION
  Report Type: Spontaneous
  Country: US (occurrence: US)
  Receive Date: 20151012
  Receipt Date: 20151012
  Transmission Date: 20160304
  Serious: Yes (Other)
  Sender: FDA-Public Use
  Company Number: US-IPCA LABORATORIES LIMITED-IPC201509-000648

PATIENT
  Age: 49 Year
  Sex: Female

DRUGS (9)
  1. ONDANSETRON [Suspect]
     Active Substance: ONDANSETRON
     Indication: NAUSEA
     Route: 042
  2. FENTANYL. [Suspect]
     Active Substance: FENTANYL
     Route: 062
  3. DULOXETINE. [Suspect]
     Active Substance: DULOXETINE
  4. ONDANSETRON [Suspect]
     Active Substance: ONDANSETRON
     Indication: VOMITING
  5. METOPROLOL [Concomitant]
     Active Substance: METOPROLOL
  6. SALSALATE. [Concomitant]
     Active Substance: SALSALATE
  7. MORPHINE [Concomitant]
     Active Substance: MORPHINE
     Indication: ABDOMINAL PAIN
     Route: 042
  8. LIDOCAINE. [Concomitant]
     Active Substance: LIDOCAINE
  9. CLONAZEPAM. [Concomitant]
     Active Substance: CLONAZEPAM

REACTIONS (1)
  - Serotonin syndrome [Unknown]
